FAERS Safety Report 9232180 (Version 1)
Quarter: 2013Q2

REPORT INFORMATION
  Report Type: Spontaneous
  Country: GB (occurrence: GB)
  Receive Date: 20130415
  Receipt Date: 20130415
  Transmission Date: 20140414
  Serious: Yes (Death, Other)
  Sender: FDA-Public Use
  Company Number: GB-009507513-0302GBR00170

PATIENT
  Age: 81 Year
  Sex: Female
  Weight: 66.1 kg

DRUGS (15)
  1. FOSAMAX 70 MG HEBDOMADAIRE, COMPRIM?S [Suspect]
     Dosage: 70 MG, QW
     Route: 048
     Dates: end: 20021226
  2. MOTRIN [Suspect]
     Dosage: UNK
     Dates: end: 20021226
  3. DIGOXIN [Concomitant]
     Indication: ATRIAL FIBRILLATION
     Dosage: 187.5 ?G, QD
     Route: 042
  4. FLUCONAZOLE [Concomitant]
     Dosage: UNK UNK, QD
     Route: 042
  5. FLUOXETINE [Concomitant]
     Dosage: 20 MG, QD
     Route: 048
  6. HYDROCORTISONE SODIUM PHOSPHATE [Concomitant]
     Dosage: 50 MG, QD
     Route: 042
  7. IPRATROPIUM BROMIDE [Concomitant]
     Dosage: 2 DF, QID
     Route: 055
  8. LISINOPRIL [Concomitant]
     Dosage: 10 MG, QD
     Route: 048
  9. OCTREOTIDE [Concomitant]
     Dosage: 50 ?G, TID
     Route: 058
  10. OMEPRAZOLE [Concomitant]
     Dosage: 60 MG, QD
     Route: 042
  11. PARACETAMOL [Concomitant]
     Dosage: 1 G, QID
     Route: 048
  12. SALBUTAMOL [Concomitant]
     Dosage: 2 DF, QID
     Route: 055
  13. SERETIDE [Concomitant]
     Dosage: 250 ?G, BID
     Route: 045
  14. VANCOMYCIN [Concomitant]
     Dosage: 500 MG, BID
     Route: 042
  15. WARFARIN [Concomitant]

REACTIONS (3)
  - Gastric ulcer perforation [Fatal]
  - Gastroenteritis [Fatal]
  - Drug interaction [Fatal]
